FAERS Safety Report 4473258-0 (Version None)
Quarter: 2004Q4

REPORT INFORMATION
  Report Type: 
  Country: None (occurrence: None)
  Receive Date: 20041013
  Receipt Date: 20041007
  Transmission Date: 20050328
  Serious: Yes (Other)
  Sender: FDA-Public Use
  Company Number: PHBS2004CZ13320

PATIENT
  Age: 33 Year
  Sex: Male

DRUGS (7)
  1. LESCOL XL [Suspect]
     Indication: DYSLIPIDAEMIA
     Dosage: 80 MG/DAY
     Route: 048
  2. LIPANOR [Suspect]
  3. AGEN [Suspect]
  4. MILURIT [Concomitant]
  5. ROCALTROL [Concomitant]
  6. FURON [Concomitant]
  7. ACCUPRO [Concomitant]

REACTIONS (5)
  - BLOOD CREATINE PHOSPHOKINASE INCREASED [None]
  - CHROMATURIA [None]
  - DRUG INTERACTION [None]
  - MYALGIA [None]
  - MYOGLOBIN URINE PRESENT [None]
